FAERS Safety Report 26140602 (Version 3)
Quarter: 2025Q4

REPORT INFORMATION
  Report Type: Spontaneous
  Country: US (occurrence: US)
  Receive Date: 20251210
  Receipt Date: 20251230
  Transmission Date: 20260118
  Serious: No
  Sender: SANDOZ
  Company Number: US-SANDOZ-SDZ2025US092912

PATIENT
  Age: 36 Year
  Sex: Female

DRUGS (3)
  1. INFUVITE ADULT [Suspect]
     Active Substance: .ALPHA.-TOCOPHEROL ACETATE\ASCORBIC ACID\BIOTIN\CHOLECALCIFEROL\CYANOCOBALAMIN\DEXPANTHENOL\FOLIC AC
     Indication: Immunodeficiency
     Dosage: UNK
  2. INFUVITE ADULT [Suspect]
     Active Substance: .ALPHA.-TOCOPHEROL ACETATE\ASCORBIC ACID\BIOTIN\CHOLECALCIFEROL\CYANOCOBALAMIN\DEXPANTHENOL\FOLIC AC
     Dosage: UNK
  3. SODIUM CHLORIDE [Concomitant]
     Active Substance: SODIUM CHLORIDE
     Indication: Product used for unknown indication
     Dosage: DILUTED IN 1 LITER OF 0.9% NORMAL SALINE

REACTIONS (4)
  - Dyspnoea [Recovered/Resolved]
  - Throat irritation [Recovering/Resolving]
  - Palpitations [Recovering/Resolving]
  - Adverse reaction [Unknown]

NARRATIVE: CASE EVENT DATE: 20251129
